FAERS Safety Report 10202519 (Version 7)
Quarter: 2014Q3

REPORT INFORMATION
  Report Type: Report from Study
  Country: BR (occurrence: BR)
  Receive Date: 20140528
  Receipt Date: 20140829
  Transmission Date: 20150326
  Serious: Yes (Hospitalization, Other)
  Sender: FDA-Public Use
  Company Number: PHHY2014BR063530

PATIENT
  Age: 13 Year
  Sex: Male
  Weight: 32 kg

DRUGS (7)
  1. PANCREASE MT [Concomitant]
     Active Substance: PANCRELIPASE
     Indication: PANCREATIC ENZYME ABNORMALITY
     Dosage: UNK UKN, UNK
     Route: 048
  2. TOBRAMYCIN [Concomitant]
     Active Substance: TOBRAMYCIN
     Indication: RESPIRATORY DISORDER
     Dosage: UNK UKN, Q12H
     Route: 042
     Dates: start: 20140805, end: 20140816
  3. ZOTEON PODHALER [Suspect]
     Active Substance: TOBRAMYCIN
     Indication: CYSTIC FIBROSIS
     Dosage: 4 DF, BID (4 CAPSULES IN THE MORNING AND 4 CAPSULES AT NIGHT)
     Route: 055
     Dates: start: 201404, end: 20140731
  4. CREON [Concomitant]
     Active Substance: PANCRELIPASE AMYLASE\PANCRELIPASE LIPASE\PANCRELIPASE PROTEASE
     Indication: PANCREATIC DISORDER
     Dosage: UNK UKN, UNK
  5. TOBRAMYCIN [Concomitant]
     Active Substance: TOBRAMYCIN
     Indication: DYSPNOEA
  6. TOBRAMYCIN [Concomitant]
     Active Substance: TOBRAMYCIN
     Indication: CYSTIC FIBROSIS
     Dosage: 2 DF, DAILY
     Route: 055
  7. PANCREATIC ENZYMES [Concomitant]
     Active Substance: UNSPECIFIED INGREDIENT
     Indication: CYSTIC FIBROSIS
     Dosage: 2 TO 3 CAPSULES, EACH MEAL

REACTIONS (10)
  - Condition aggravated [Not Recovered/Not Resolved]
  - Respiratory disorder [Recovering/Resolving]
  - Dyspnoea [Recovering/Resolving]
  - Pseudomonas infection [Unknown]
  - Pancreatic disorder [Not Recovered/Not Resolved]
  - Gastrointestinal disorder [Not Recovered/Not Resolved]
  - Lung disorder [Not Recovered/Not Resolved]
  - Cystic fibrosis [Recovering/Resolving]
  - Pulmonary vein occlusion [Not Recovered/Not Resolved]
  - Pneumonia [Recovering/Resolving]

NARRATIVE: CASE EVENT DATE: 20140804
